FAERS Safety Report 4561255-6 (Version None)
Quarter: 2005Q1

REPORT INFORMATION
  Report Type: 
  Country: None (occurrence: None)
  Receive Date: 20050121
  Receipt Date: 20050111
  Transmission Date: 20050727
  Serious: No
  Sender: FDA-Public Use
  Company Number: 2005PK00091

PATIENT
  Age: 45 Year
  Sex: Female
  Weight: 55 kg

DRUGS (1)
  1. ZOMIG [Suspect]
     Indication: MIGRAINE
     Dosage: 2.5 MG DAILY PO
     Route: 048
     Dates: start: 20041015, end: 20041015

REACTIONS (3)
  - CARDIOVASCULAR DISORDER [None]
  - RETINAL VEIN THROMBOSIS [None]
  - VASOSPASM [None]
